FAERS Safety Report 5913902-1 (Version None)
Quarter: 2008Q4

REPORT INFORMATION
  Report Type: 
  Country: None (occurrence: None)
  Receive Date: 20081009
  Receipt Date: 20080929
  Transmission Date: 20090506
  Serious: Yes (Other)
  Sender: FDA-Public Use
  Company Number: B0539233A

PATIENT
  Age: 2 Day
  Sex: Male
  Weight: 3.3 kg

DRUGS (1)
  1. RETROVIR [Suspect]
     Indication: ANTIVIRAL PROPHYLAXIS
     Dosage: 6.5ML SINGLE DOSE
     Route: 048
     Dates: start: 20080829, end: 20080829

REACTIONS (4)
  - INCORRECT DOSE ADMINISTERED [None]
  - MEDICATION ERROR [None]
  - NO ADVERSE EVENT [None]
  - OVERDOSE [None]
